FAERS Safety Report 11390196 (Version 1)
Quarter: 2015Q3

REPORT INFORMATION
  Report Type: Spontaneous
  Country: US (occurrence: None)
  Receive Date: 20150814
  Receipt Date: 20150814
  Transmission Date: 20151125
  Serious: No
  Sender: FDA-Public Use
  Company Number: None

PATIENT
  Age: 64 Year
  Sex: Female
  Weight: 68.2 kg

DRUGS (6)
  1. BACTRIM [Concomitant]
     Active Substance: SULFAMETHOXAZOLE\TRIMETHOPRIM
  2. PREMARIN [Concomitant]
     Active Substance: ESTROGENS, CONJUGATED
  3. NIFEDIPINE. [Concomitant]
     Active Substance: NIFEDIPINE
  4. ALBUTEROL. [Concomitant]
     Active Substance: ALBUTEROL
  5. LASIX [Concomitant]
     Active Substance: FUROSEMIDE
  6. HARVONI [Suspect]
     Active Substance: LEDIPASVIR\SOFOSBUVIR
     Indication: HEPATITIS C
     Dosage: 90/400 MG
     Route: 048
     Dates: start: 20150501

REACTIONS (15)
  - Mental status changes [None]
  - Fatigue [None]
  - Confusional state [None]
  - Headache [None]
  - Dizziness [None]
  - Musculoskeletal pain [None]
  - Memory impairment [None]
  - White blood cell count increased [None]
  - Hepatic encephalopathy [None]
  - Diarrhoea [None]
  - Insomnia [None]
  - Back pain [None]
  - Fall [None]
  - Diplopia [None]
  - Vertigo [None]

NARRATIVE: CASE EVENT DATE: 20150709
